FAERS Safety Report 21392937 (Version 3)
Quarter: 2022Q4

REPORT INFORMATION
  Report Type: Spontaneous
  Country: JP (occurrence: JP)
  Receive Date: 20220929
  Receipt Date: 20221221
  Transmission Date: 20230112
  Serious: Yes (Death, Hospitalization, Other)
  Sender: FDA-Public Use
  Company Number: JP-BRISTOL-MYERS SQUIBB COMPANY-2022-113885

PATIENT
  Age: 70 Year
  Sex: Male
  Weight: 57 kg

DRUGS (8)
  1. ABRAXANE [Suspect]
     Active Substance: PACLITAXEL
     Indication: Pancreatic carcinoma
     Route: 041
     Dates: start: 20210721, end: 20210823
  2. TS-1 [Suspect]
     Active Substance: GIMERACIL\OTERACIL\TEGAFUR
     Indication: Pancreatic carcinoma
     Dosage: 2 CYCLES IN COMBINATION WITH GEMCITABINE HYDROCHLORIDE?100MG (50MG, 1 IN 12HOURS)
     Route: 048
     Dates: start: 20210628, end: 20210702
  3. GEMZAR [Suspect]
     Active Substance: GEMCITABINE HYDROCHLORIDE
     Indication: Pancreatic carcinoma
     Dosage: 1ST AND 2ND CYCLE IN COMBINATION WITH TS-1
     Route: 041
     Dates: start: 20210628, end: 20210628
  4. GEMZAR [Suspect]
     Active Substance: GEMCITABINE HYDROCHLORIDE
     Indication: Pancreatic carcinoma
     Dosage: IN COMBINATION WITH ABRAXANE
     Route: 041
     Dates: start: 20210721, end: 20210823
  5. BILASTINE [Suspect]
     Active Substance: BILASTINE
     Indication: Drug eruption
     Route: 048
     Dates: start: 20210810
  6. AMLODIPINE [Concomitant]
     Active Substance: AMLODIPINE BESYLATE
     Indication: Product used for unknown indication
  7. CANDESARTAN [Concomitant]
     Active Substance: CANDESARTAN
     Indication: Product used for unknown indication
  8. REBAMIPIDE [Concomitant]
     Active Substance: REBAMIPIDE
     Indication: Product used for unknown indication

REACTIONS (8)
  - Malignant neoplasm progression [Fatal]
  - Erythema multiforme [Not Recovered/Not Resolved]
  - Drug eruption [Not Recovered/Not Resolved]
  - Cholangitis [Unknown]
  - Hypophagia [Unknown]
  - Face oedema [Not Recovered/Not Resolved]
  - Condition aggravated [Not Recovered/Not Resolved]
  - Superficial inflammatory dermatosis [Unknown]

NARRATIVE: CASE EVENT DATE: 20210707
